FAERS Safety Report 5220725-8 (Version None)
Quarter: 2007Q1

REPORT INFORMATION
  Report Type: 
  Country: None (occurrence: None)
  Receive Date: 20070126
  Receipt Date: 20070118
  Transmission Date: 20070707
  Serious: Yes (Hospitalization)
  Sender: FDA-Public Use
  Company Number: 2007CG00126

PATIENT
  Age: 36 Year
  Sex: Male

DRUGS (12)
  1. OMEPRAZOLE [Suspect]
     Indication: GASTROINTESTINAL ULCER
     Route: 048
     Dates: start: 20060609, end: 20060701
  2. OMEPRAZOLE [Suspect]
     Indication: HELICOBACTER INFECTION
     Route: 048
     Dates: start: 20060609, end: 20060701
  3. OMEPRAZOLE [Suspect]
     Route: 048
     Dates: start: 20060808, end: 20060901
  4. OMEPRAZOLE [Suspect]
     Route: 048
     Dates: start: 20060808, end: 20060901
  5. AMOXICILLIN [Concomitant]
     Indication: GASTROINTESTINAL ULCER
     Dates: start: 20060609
  6. AMOXICILLIN [Concomitant]
     Indication: HELICOBACTER INFECTION
     Dates: start: 20060609
  7. AMOXICILLIN [Concomitant]
     Dates: start: 20060808
  8. AMOXICILLIN [Concomitant]
     Dates: start: 20060808
  9. CLARITHROMYCIN [Concomitant]
     Indication: GASTROINTESTINAL ULCER
     Dates: start: 20060609
  10. CLARITHROMYCIN [Concomitant]
     Indication: HELICOBACTER INFECTION
     Dates: start: 20060609
  11. CLARITHROMYCIN [Concomitant]
     Dates: start: 20060808
  12. CLARITHROMYCIN [Concomitant]
     Dates: start: 20060808

REACTIONS (2)
  - BLOOD CREATINE PHOSPHOKINASE INCREASED [None]
  - MYALGIA [None]
